FAERS Safety Report 20808936 (Version 2)
Quarter: 2022Q2

REPORT INFORMATION
  Report Type: Spontaneous
  Country: FR (occurrence: FR)
  Receive Date: 20220510
  Receipt Date: 20220527
  Transmission Date: 20220721
  Serious: Yes (Other)
  Sender: FDA-Public Use
  Company Number: FR-AUROBINDO-AUR-APL-2022-012894

PATIENT
  Sex: Male
  Weight: 83.5 kg

DRUGS (1)
  1. SPIRONOLACTONE [Suspect]
     Active Substance: SPIRONOLACTONE
     Indication: Primary hyperaldosteronism
     Dosage: 100 MILLIGRAM
     Route: 048
     Dates: start: 20211010

REACTIONS (2)
  - Hypertension [Unknown]
  - Gynaecomastia [Unknown]
